FAERS Safety Report 8599354-4 (Version None)
Quarter: 2012Q3

REPORT INFORMATION
  Report Type: 
  Country: None (occurrence: None)
  Receive Date: 20120816
  Receipt Date: 20120809
  Transmission Date: 20120928
  Serious: Yes (Other)
  Sender: FDA-Public Use
  Company Number: CO-ROCHE-1102272

PATIENT

DRUGS (2)
  1. XOLAIR [Suspect]
     Indication: LATEX ALLERGY
     Route: 058
     Dates: start: 20120806
  2. XOLAIR [Suspect]
     Indication: ALLERGY TO CHEMICALS

REACTIONS (4)
  - RASH MACULAR [None]
  - ODYNOPHAGIA [None]
  - SUNBURN [None]
  - MYALGIA [None]
